FAERS Safety Report 6433391-0 (Version None)
Quarter: 2009Q4

REPORT INFORMATION
  Report Type: 
  Country: None (occurrence: None)
  Receive Date: 20091106
  Receipt Date: 20091106
  Transmission Date: 20100525
  Serious: Yes (Other)
  Sender: FDA-Public Use
  Company Number: None

PATIENT
  Age: 46 Year
  Sex: Male
  Weight: 87.9978 kg

DRUGS (3)
  1. VANCOMYCIN [Suspect]
     Indication: ABSCESS
     Dosage: 1.5 G 12 HR IV
     Route: 042
     Dates: start: 20090905, end: 20090908
  2. VANCOMYCIN [Suspect]
     Indication: CELLULITIS
     Dosage: 1.5 G 12 HR IV
     Route: 042
     Dates: start: 20090905, end: 20090908
  3. GENTAMICIN [Concomitant]

REACTIONS (1)
  - RASH [None]
